FAERS Safety Report 9690882 (Version 1)
Quarter: 2013Q4

REPORT INFORMATION
  Report Type: Report from Study
  Country: AR (occurrence: AR)
  Receive Date: 20131115
  Receipt Date: 20131115
  Transmission Date: 20140711
  Serious: Yes (Other)
  Sender: FDA-Public Use
  Company Number: PHHY2013AR130667

PATIENT
  Sex: Male

DRUGS (1)
  1. DIOVAN D [Suspect]
     Indication: HYPERTENSION
     Dosage: 80/12.5 MG, UNK
     Route: 048
     Dates: start: 201309, end: 201310

REACTIONS (3)
  - Haemorrhoids [Recovering/Resolving]
  - Dizziness [Recovering/Resolving]
  - Drug intolerance [Recovering/Resolving]
